FAERS Safety Report 11596795 (Version 1)
Quarter: 2015Q4

REPORT INFORMATION
  Report Type: Spontaneous
  Country: US (occurrence: US)
  Receive Date: 20151006
  Receipt Date: 20151006
  Transmission Date: 20160304
  Serious: No
  Sender: FDA-Public Use
  Company Number: US-TEVA-598761USA

PATIENT
  Age: 52 Year
  Sex: Female

DRUGS (1)
  1. PROGLYCEM SUSPENSION [Suspect]
     Active Substance: DIAZOXIDE
     Indication: INSULINOMA
     Route: 065
     Dates: start: 201507

REACTIONS (2)
  - Paraesthesia [Not Recovered/Not Resolved]
  - Hypoaesthesia [Not Recovered/Not Resolved]
